FAERS Safety Report 10788443 (Version 1)
Quarter: 2015Q1

REPORT INFORMATION
  Report Type: Spontaneous
  Country: US (occurrence: US)
  Receive Date: 20150212
  Receipt Date: 20150212
  Transmission Date: 20150721
  Serious: No
  Sender: FDA-Public Use
  Company Number: US-CELGENEUS-USA-2014094581

PATIENT
  Age: 76 Year
  Sex: Male
  Weight: 77.1 kg

DRUGS (2)
  1. POMALIDOMIDE [Suspect]
     Active Substance: POMALIDOMIDE
     Route: 048
     Dates: start: 201501
  2. POMALIDOMIDE [Suspect]
     Active Substance: POMALIDOMIDE
     Indication: PLASMA CELL MYELOMA
     Route: 048
     Dates: start: 20140828

REACTIONS (2)
  - Neuropathy peripheral [Unknown]
  - Miliaria [Recovered/Resolved]

NARRATIVE: CASE EVENT DATE: 20140829
